FAERS Safety Report 7631873-7 (Version None)
Quarter: 2011Q3

REPORT INFORMATION
  Report Type: 
  Country: None (occurrence: None)
  Receive Date: 20110725
  Receipt Date: 20110425
  Transmission Date: 20111222
  Serious: No
  Sender: FDA-Public Use
  Company Number: US-BRISTOL-MYERS SQUIBB COMPANY-15694466

PATIENT
  Age: 46 Year
  Sex: Female
  Weight: 93 kg

DRUGS (2)
  1. WARFARIN SODIUM [Suspect]
     Dosage: DOSE INCREASED TO 10MG FOUR DAYS/WEEK,15MG THREE DAYS/WEEK
  2. LISINOPRIL [Concomitant]
     Indication: BLOOD PRESSURE

REACTIONS (2)
  - DIZZINESS [None]
  - PAIN [None]
